FAERS Safety Report 9371902 (Version 1)
Quarter: 2013Q2

REPORT INFORMATION
  Report Type: Spontaneous
  Country: GB (occurrence: None)
  Receive Date: 20130618
  Receipt Date: 20130618
  Transmission Date: 20140414
  Serious: Yes (Other)
  Sender: FDA-Public Use
  Company Number: 2012033141

PATIENT
  Age: 61 Year
  Sex: Female

DRUGS (2)
  1. PRIVIGEN [Suspect]
     Indication: IDIOPATHIC THROMBOCYTOPENIC PURPURA
     Dosage: 20 GM QD, DOSAGE: 1G/KG, INTRAVENOUS (NOT OTHERWISE SPECIFIED)
     Route: 042
     Dates: start: 20120418
  2. METHYLPREDNISOLONE (METHYLPREDNISOLONE) [Concomitant]

REACTIONS (10)
  - Haemolytic anaemia [None]
  - Platelet count decreased [None]
  - Dyspnoea [None]
  - Condition aggravated [None]
  - Fatigue [None]
  - Polychromasia [None]
  - Red blood cell spherocytes present [None]
  - Reticulocytosis [None]
  - Coombs direct test positive [None]
  - Diarrhoea [None]
